FAERS Safety Report 10155813 (Version 1)
Quarter: 2014Q2

REPORT INFORMATION
  Report Type: Report from Study
  Country: BR (occurrence: BR)
  Receive Date: 20140506
  Receipt Date: 20140506
  Transmission Date: 20141212
  Serious: Yes (Other)
  Sender: FDA-Public Use
  Company Number: PHHY2014BR052803

PATIENT
  Sex: Female
  Weight: 85 kg

DRUGS (5)
  1. GALVUS [Suspect]
     Indication: DIABETES MELLITUS
     Dosage: 1 TABLET (50 MG) DAILY (IN THE MORNING)
     Route: 048
  2. GALVUS [Suspect]
     Dosage: 1 TABLET (50 MG) DAILY (IN THE MORNING)
     Route: 048
  3. METFORMIN [Suspect]
     Indication: DIABETES MELLITUS
     Dosage: 3 DF (850 MG) DAILY
     Route: 048
  4. ALENIA                             /01538101/ [Suspect]
     Indication: ASTHMA
     Dosage: 1 DF (400/12 UG) AT MORNING AND NIGHT
     Route: 055
  5. SPIRIVA [Suspect]
     Indication: ASTHMA
     Dosage: 2 DF (2.5 UG), DAILY (IN THE MORNING)
     Route: 055

REACTIONS (5)
  - Diverticulitis [Recovering/Resolving]
  - Jaundice [Recovering/Resolving]
  - Ocular icterus [Recovering/Resolving]
  - Bile duct obstruction [Recovering/Resolving]
  - Liver disorder [Recovering/Resolving]
